FAERS Safety Report 8479376-4 (Version None)
Quarter: 2012Q2

REPORT INFORMATION
  Report Type: 
  Country: None (occurrence: None)
  Receive Date: 20120629
  Receipt Date: 20120622
  Transmission Date: 20120825
  Serious: Yes (Other)
  Sender: FDA-Public Use
  Company Number: FR-UCBSA-060385

PATIENT

DRUGS (3)
  1. VIMPAT [Suspect]
     Route: 048
  2. KEPPRA [Concomitant]
     Route: 048
  3. TEGRETOL [Concomitant]

REACTIONS (1)
  - DELIRIUM [None]
